FAERS Safety Report 16635822 (Version 1)
Quarter: 2019Q3

REPORT INFORMATION
  Report Type: Spontaneous
  Country: US (occurrence: US)
  Receive Date: 20190725
  Receipt Date: 20190725
  Transmission Date: 20191004
  Serious: No
  Sender: FDA-Public Use
  Company Number: None

PATIENT
  Age: 28 Year
  Sex: Female
  Weight: 61.65 kg

DRUGS (6)
  1. LIVER SUPPORT [Concomitant]
  2. TRIAMCINOLONE ACETONIDE CREAM USP 0.025% [Suspect]
     Active Substance: TRIAMCINOLONE ACETONIDE
     Indication: ECZEMA
     Dosage: ?          QUANTITY:15 GRAMS;OTHER FREQUENCY:3 TIMES TOTAL;?
     Route: 061
     Dates: start: 20181001, end: 20181004
  3. PROBIOTICS [Concomitant]
     Active Substance: PROBIOTICS NOS
  4. LIVER DETOX [Concomitant]
  5. QUECERETIN [Concomitant]
  6. ALBUTEROL INHALER [Concomitant]
     Active Substance: ALBUTEROL

REACTIONS (11)
  - Anxiety [None]
  - Alopecia [None]
  - Hydrophobia [None]
  - Heart rate increased [None]
  - Generalised erythema [None]
  - Rash generalised [None]
  - Pruritus generalised [None]
  - Skin exfoliation [None]
  - Steroid withdrawal syndrome [None]
  - Body temperature abnormal [None]
  - Wound secretion [None]

NARRATIVE: CASE EVENT DATE: 20190115
